FAERS Safety Report 20777323 (Version 2)
Quarter: 2022Q2

REPORT INFORMATION
  Report Type: Spontaneous
  Country: GB (occurrence: GB)
  Receive Date: 20220503
  Receipt Date: 20220505
  Transmission Date: 20220720
  Serious: Yes (Other)
  Sender: FDA-Public Use
  Company Number: GB-SANOFI-01054896

PATIENT
  Age: 40 Year
  Sex: Female

DRUGS (7)
  1. LANTUS [Suspect]
     Active Substance: INSULIN GLARGINE
     Indication: Type 1 diabetes mellitus
     Dosage: 18 IU, BID
  2. LANTUS [Suspect]
     Active Substance: INSULIN GLARGINE
     Dosage: 12 U, QD
  3. LANTUS [Suspect]
     Active Substance: INSULIN GLARGINE
     Dosage: 14 U
     Dates: start: 20220402, end: 20220407
  4. NOVORAPID [Concomitant]
     Active Substance: INSULIN ASPART
  5. VITAMIN D NOS [Concomitant]
     Active Substance: VITAMIN D NOS
  6. FOLIC ACID [Concomitant]
     Active Substance: FOLIC ACID
  7. ESCITALOPRAM [Concomitant]
     Active Substance: ESCITALOPRAM OXALATE

REACTIONS (10)
  - Hypoglycaemia [Recovered/Resolved]
  - Disorientation [Recovered/Resolved]
  - Tremor [Recovered/Resolved]
  - Dizziness [Recovered/Resolved]
  - Psychiatric symptom [Recovered/Resolved]
  - Malaise [Unknown]
  - Nervousness [Unknown]
  - Anxiety [Unknown]
  - Blood glucose decreased [Unknown]
  - Inappropriate schedule of product administration [Unknown]

NARRATIVE: CASE EVENT DATE: 20220407
